FAERS Safety Report 18023229 (Version 1)
Quarter: 2020Q3

REPORT INFORMATION
  Report Type: Spontaneous
  Country: ES (occurrence: ES)
  Receive Date: 20200715
  Receipt Date: 20200715
  Transmission Date: 20201103
  Serious: Yes (Other)
  Sender: FDA-Public Use
  Company Number: ES-AUROBINDO-AUR-APL-2020-034455

PATIENT
  Age: 44 Year
  Sex: Male
  Weight: 80 kg

DRUGS (2)
  1. AMOXICILLIN / CLAVULANIC ACID FILM?COATED TABLETS 875/125MG [Suspect]
     Active Substance: AMOXICILLIN\CLAVULANIC ACID
     Indication: ARTHRITIS
     Dosage: 875 MILLIGRAM
     Route: 048
     Dates: start: 20200602, end: 20200608
  2. IBUPROFEN 600 MG FILM?COATED TABLETS [Suspect]
     Active Substance: IBUPROFEN
     Indication: ARTHRITIS
     Dosage: 600 MILLIGRAM
     Route: 048
     Dates: start: 20200615

REACTIONS (2)
  - Lip oedema [Recovered/Resolved]
  - Laryngeal oedema [Recovered/Resolved]

NARRATIVE: CASE EVENT DATE: 20200615
